FAERS Safety Report 13942299 (Version 2)
Quarter: 2017Q3

REPORT INFORMATION
  Report Type: Spontaneous
  Country: FR (occurrence: FR)
  Receive Date: 20170907
  Receipt Date: 20170914
  Transmission Date: 20171127
  Serious: Yes (Hospitalization)
  Sender: FDA-Public Use
  Company Number: FR-ASTRAZENECA-2017SE90713

PATIENT
  Age: 12555 Day
  Sex: Female

DRUGS (7)
  1. DOLIPRANE [Suspect]
     Active Substance: ACETAMINOPHEN
     Indication: GAIT DISTURBANCE
     Dosage: UNSPECIFIED DOSE, DAILY
     Route: 048
     Dates: start: 20170813, end: 20170814
  2. RHINOCORT [Suspect]
     Active Substance: BUDESONIDE
     Indication: NASAL DECONGESTION THERAPY
     Dosage: TWO SPRAYS PER DAY (ONE SPRAY IN THE MORNING AND IN THE EVENING IN EACH NOSTRIL), TWICE A DAY
     Route: 045
     Dates: end: 20170814
  3. LACTOBACILLUS ACIDOPHILUS [Suspect]
     Active Substance: LACTOBACILLUS ACIDOPHILUS
     Indication: DIARRHOEA
     Dosage: UNSPECIFIED DOSE, DAILY
     Route: 048
     Dates: start: 20170728, end: 20170814
  4. GAVISCON [Suspect]
     Active Substance: ALUMINUM HYDROXIDE\MAGNESIUM CARBONATE
     Indication: GASTROOESOPHAGEAL REFLUX DISEASE
     Dosage: UNSPECIFIED DOSE, DAILY
     Route: 048
     Dates: start: 20170813, end: 20170814
  5. ERCEFURYL [Suspect]
     Active Substance: NIFUROXAZIDE
     Indication: DIARRHOEA
     Route: 048
     Dates: start: 20170727, end: 20170731
  6. DEBRIDAT [Suspect]
     Active Substance: TRIMEBUTINE MALEATE
     Indication: GASTROINTESTINAL DISORDER
     Dosage: IF NEEDED
     Route: 065
     Dates: start: 20170728, end: 20170814
  7. SMECTA [Suspect]
     Active Substance: MONTMORILLONITE
     Indication: DIARRHOEA
     Dosage: UNSPECIFIED DOSE, DAILY
     Route: 048
     Dates: start: 20170727, end: 20170801

REACTIONS (1)
  - Pancreatitis [Recovering/Resolving]

NARRATIVE: CASE EVENT DATE: 20170814
